FAERS Safety Report 7258922-2 (Version None)
Quarter: 2011Q1

REPORT INFORMATION
  Report Type: 
  Country: None (occurrence: None)
  Receive Date: 20110129
  Receipt Date: 20100614
  Transmission Date: 20110831
  Serious: No
  Sender: FDA-Public Use
  Company Number: US-ABBOTT-10P-163-0651266-00

PATIENT
  Age: 49 Year
  Sex: Male

DRUGS (2)
  1. ALLOPURINOL [Concomitant]
     Indication: PRODUCT USED FOR UNKNOWN INDICATION
  2. HUMIRA [Suspect]
     Indication: PSORIASIS
     Dosage: 80MG ON 11 JUN 2010 WITH NEXT INJECTION THEN 40 EVERY OTHER WEEK
     Dates: start: 20100611

REACTIONS (1)
  - PRURITUS [None]
